FAERS Safety Report 4859662-7 (Version None)
Quarter: 2005Q4

REPORT INFORMATION
  Report Type: 
  Country: None (occurrence: None)
  Receive Date: 20051219
  Receipt Date: 20040106
  Transmission Date: 20060501
  Serious: Yes (Other)
  Sender: FDA-Public Use
  Company Number: 200410133GDDC

PATIENT
  Age: 38 Year
  Sex: Male

DRUGS (13)
  1. CODE UNBROKEN [Suspect]
     Indication: MYOCARDIAL INFARCTION
     Dosage: DOSE: ENOX/PLACEBO BOLUS GIVEN
  2. CODE UNBROKEN [Suspect]
     Dosage: DOSE: HEP/PLACEBO BOLUS NOT GIVEN
  3. CODE UNBROKEN [Suspect]
     Dosage: DOSE: ENOX/PLACEBO SC 85 UNITS
     Route: 058
  4. CODE UNBROKEN [Suspect]
     Dosage: DOSE: HEP/PLACEBO IV DOSAGE 1023 (UNITS NOT SPECIFIED) ; FREQUENCY: CONTINUOUS
     Route: 041
  5. ASPIRIN [Suspect]
     Indication: MYOCARDIAL INFARCTION
     Route: 048
     Dates: start: 20031105
  6. STREPTASE [Suspect]
     Indication: MYOCARDIAL INFARCTION
     Route: 041
     Dates: start: 20031105, end: 20031105
  7. ENOXAPARIN SODIUM [Suspect]
     Route: 058
  8. CLOPIDOGREL [Suspect]
     Indication: VASODILATATION
     Route: 048
     Dates: start: 20031107
  9. CLOPIDOGREL [Suspect]
     Indication: THROMBOSIS
     Route: 048
     Dates: start: 20031107
  10. WARFARIN [Suspect]
     Indication: VASODILATATION
     Route: 048
     Dates: start: 20031110
  11. WARFARIN [Suspect]
     Indication: THROMBOSIS
     Route: 048
     Dates: start: 20031110
  12. SIMVASTATIN [Concomitant]
     Route: 048
     Dates: start: 20031107
  13. OMEPRAZOLE [Concomitant]
     Indication: PROPHYLAXIS
     Route: 048
     Dates: start: 20031109

REACTIONS (4)
  - ASTHENIA [None]
  - EROSIVE DUODENITIS [None]
  - GASTROINTESTINAL HAEMORRHAGE [None]
  - MELAENA [None]
